FAERS Safety Report 9447952 (Version 2)
Quarter: 2013Q4

REPORT INFORMATION
  Report Type: Spontaneous
  Country: US (occurrence: US)
  Receive Date: 20130808
  Receipt Date: 20131028
  Transmission Date: 20140711
  Serious: Yes (Death)
  Sender: FDA-Public Use
  Company Number: PHEH2013US016693

PATIENT
  Age: 75 Year
  Sex: Female

DRUGS (3)
  1. EXELON PATCH [Suspect]
     Dosage: 4.6 MG, (PATCH 5CM2), UNK
     Route: 062
  2. EXELON PATCH [Suspect]
     Dosage: 9.5 MG, (PATCH 10CM2), UNK
     Route: 062
  3. EXELON PATCH [Suspect]
     Dosage: 4.6 MG, (PATCH 5CM2), UNK
     Route: 062

REACTIONS (3)
  - Urinary tract infection [Fatal]
  - Confusional state [Unknown]
  - Weight decreased [Unknown]
